FAERS Safety Report 7268721-3 (Version None)
Quarter: 2011Q1

REPORT INFORMATION
  Report Type: 
  Country: None (occurrence: None)
  Receive Date: 20110201
  Receipt Date: 20110119
  Transmission Date: 20110831
  Serious: Yes (Hospitalization)
  Sender: FDA-Public Use
  Company Number: US-CELGENEUS-163-21880-11011945

PATIENT
  Sex: Male

DRUGS (2)
  1. REVLIMID [Suspect]
     Indication: MULTIPLE MYELOMA
     Route: 048
     Dates: start: 20101111
  2. REVLIMID [Suspect]
     Route: 048
     Dates: start: 20101201

REACTIONS (4)
  - PULMONARY EMBOLISM [None]
  - DELIRIUM [None]
  - HYPOTENSION [None]
  - ASTHENIA [None]
